FAERS Safety Report 7679651 (Version 3)
Quarter: 2014Q1

REPORT INFORMATION
  Report Type: Spontaneous
  Country: US (occurrence: US)
  Receive Date: 20101123
  Receipt Date: 20140311
  Transmission Date: 20141002
  Serious: Yes (Other)
  Sender: FDA-Public Use
  Company Number: US-ASTRAZENECA-2010SE52326

PATIENT
  Age: 47 Year
  Sex: Female

DRUGS (7)
  1. NEXIUM [Suspect]
     Indication: GASTROINTESTINAL DISORDER
     Route: 048
     Dates: start: 2006
  2. SYNTHROID [Concomitant]
     Dosage: 150 MCG 4 DAYS A WEEK
     Route: 048
  3. SYNTHROID [Concomitant]
     Dosage: 175 MCG 3 DAYS A WEEK
     Route: 048
  4. LEXAPRO [Concomitant]
     Route: 048
  5. PLAQUENIL [Concomitant]
     Dosage: 200 BID
     Route: 048
  6. ALPRAZOLAM [Concomitant]
     Route: 048
  7. B12 INJECTIONS [Concomitant]

REACTIONS (4)
  - CREST syndrome [Unknown]
  - Gastrointestinal disorder [Not Recovered/Not Resolved]
  - Dysphagia [Unknown]
  - Off label use [Unknown]
